FAERS Safety Report 7257216 (Version 12)
Quarter: 2013Q1

REPORT INFORMATION
  Report Type: Spontaneous
  Country: US (occurrence: US)
  Receive Date: 20100127
  Receipt Date: 20130212
  Transmission Date: 20140127
  Serious: Yes (Death, Hospitalization, Other)
  Sender: FDA-Public Use
  Company Number: US-BIOGENIDEC-2010BI001865

PATIENT
  Age: 46 Year
  Sex: Female
  Weight: 57 kg

DRUGS (10)
  1. TYSABRI [Suspect]
     Indication: MULTIPLE SCLEROSIS
     Route: 042
     Dates: start: 20080205, end: 20091229
  2. ADDERALL [Concomitant]
     Indication: FATIGUE
     Route: 048
  3. BACLOFEN [Concomitant]
     Indication: MUSCLE SPASTICITY
  4. DETROL LA [Concomitant]
     Indication: URINARY INCONTINENCE
  5. DETROL LA [Concomitant]
     Indication: MICTURITION URGENCY
  6. DETROL LA [Concomitant]
     Indication: POLLAKIURIA
  7. KLONOPIN [Concomitant]
     Indication: PRODUCT USED FOR UNKNOWN INDICATION
  8. LEXAPRO [Concomitant]
     Indication: DEPRESSION
  9. NEURONTIN [Concomitant]
     Indication: PRODUCT USED FOR UNKNOWN INDICATION
  10. REQUIP [Concomitant]
     Indication: PRODUCT USED FOR UNKNOWN INDICATION

REACTIONS (7)
  - Progressive multifocal leukoencephalopathy [Fatal]
  - Immune reconstitution inflammatory syndrome [Not Recovered/Not Resolved]
  - Urinary tract infection pseudomonal [Recovered/Resolved]
  - Crepitations [Unknown]
  - Diabetes mellitus [Unknown]
  - Decubitus ulcer [Unknown]
  - Coma [Not Recovered/Not Resolved]
